FAERS Safety Report 15015907 (Version 1)
Quarter: 2018Q2

REPORT INFORMATION
  Report Type: Spontaneous
  Country: US (occurrence: US)
  Receive Date: 20180615
  Receipt Date: 20180615
  Transmission Date: 20180711
  Serious: No
  Sender: FDA-Public Use
  Company Number: US-SA-2018SA158226

PATIENT
  Sex: Female

DRUGS (10)
  1. LISINOPRIL. [Concomitant]
     Active Substance: LISINOPRIL
  2. NITROFURANTOINE [Concomitant]
     Active Substance: NITROFURANTOIN
  3. PLAVIX [Concomitant]
     Active Substance: CLOPIDOGREL BISULFATE
  4. LEVOFLOXACIN. [Concomitant]
     Active Substance: LEVOFLOXACIN
  5. SIMVASTATIN. [Concomitant]
     Active Substance: SIMVASTATIN
  6. PROLIA [Concomitant]
     Active Substance: DENOSUMAB
  7. SULFAMETHOXAZOLE [Concomitant]
     Active Substance: SULFAMETHOXAZOLE
  8. CEFUROXIME. [Concomitant]
     Active Substance: CEFUROXIME
  9. REBIF [Concomitant]
     Active Substance: INTERFERON BETA-1A
  10. AUBAGIO [Suspect]
     Active Substance: TERIFLUNOMIDE
     Indication: MULTIPLE SCLEROSIS
     Dosage: 14 MG, QD
     Route: 048
     Dates: start: 20171003

REACTIONS (5)
  - Hypoaesthesia [Recovered/Resolved]
  - Vision blurred [Recovered/Resolved]
  - Cognitive disorder [Recovered/Resolved]
  - Alopecia [Recovered/Resolved]
  - Onycholysis [Recovered/Resolved]
